FAERS Safety Report 19824384 (Version 1)
Quarter: 2021Q3

REPORT INFORMATION
  Report Type: Spontaneous
  Country: DE (occurrence: DE)
  Receive Date: 20210913
  Receipt Date: 20210913
  Transmission Date: 20211014
  Serious: Yes (Disabling, Other)
  Sender: FDA-Public Use
  Company Number: DE-SA-2021SA298139

PATIENT
  Age: 62 Year
  Sex: Male

DRUGS (1)
  1. STILNOX [Suspect]
     Active Substance: ZOLPIDEM TARTRATE
     Indication: STRESS AT WORK
     Dosage: UNK
     Dates: start: 2003

REACTIONS (8)
  - Drug dependence [Unknown]
  - Dysarthria [Unknown]
  - Intentional product misuse [Unknown]
  - Product use issue [Unknown]
  - Gait disturbance [Unknown]
  - Product use in unapproved indication [Unknown]
  - Nervous system disorder [Unknown]
  - Impaired work ability [Unknown]
